FAERS Safety Report 9735852 (Version 2)
Quarter: 2015Q3

REPORT INFORMATION
  Report Type: Spontaneous
  Country: US (occurrence: US)
  Receive Date: 20131206
  Receipt Date: 20150804
  Transmission Date: 20151125
  Serious: No
  Sender: FDA-Public Use
  Company Number: US-GILEAD-2009-0024024

PATIENT
  Age: 77 Year
  Sex: Female

DRUGS (19)
  1. LISINOPRIL. [Concomitant]
     Active Substance: LISINOPRIL
  2. DILTIAZEM HYDROCHLORIDE EXTENDED RELEASE [Concomitant]
     Active Substance: DILTIAZEM HYDROCHLORIDE
  3. METOPROLOL ER [Concomitant]
     Active Substance: METOPROLOL SUCCINATE
  4. COZAAR [Concomitant]
     Active Substance: LOSARTAN POTASSIUM
  5. WARFARIN [Concomitant]
     Active Substance: WARFARIN
  6. NIFEDICAL XL [Concomitant]
     Active Substance: NIFEDIPINE
  7. LETAIRIS [Suspect]
     Active Substance: AMBRISENTAN
     Indication: PULMONARY ARTERIAL HYPERTENSION
     Route: 048
     Dates: start: 20080521
  8. ISOSORBIDE. [Concomitant]
     Active Substance: ISOSORBIDE
  9. ZETIA [Concomitant]
     Active Substance: EZETIMIBE
  10. LEVOTHYROXINE. [Concomitant]
     Active Substance: LEVOTHYROXINE
  11. FUROSEMIDE. [Concomitant]
     Active Substance: FUROSEMIDE
  12. LIPITOR [Concomitant]
     Active Substance: ATORVASTATIN CALCIUM
  13. GLIMEPIRIDE. [Concomitant]
     Active Substance: GLIMEPIRIDE
  14. DIGOXIN. [Concomitant]
     Active Substance: DIGOXIN
  15. LANTUS [Concomitant]
     Active Substance: INSULIN GLARGINE
  16. BUMETANIDE. [Concomitant]
     Active Substance: BUMETANIDE
  17. CALCIUM [Concomitant]
     Active Substance: CALCIUM
  18. NEXIUM [Concomitant]
     Active Substance: ESOMEPRAZOLE MAGNESIUM
  19. ASPIRIN. [Concomitant]
     Active Substance: ASPIRIN

REACTIONS (1)
  - Insomnia [Not Recovered/Not Resolved]
